FAERS Safety Report 9372907 (Version 1)
Quarter: 2013Q2

REPORT INFORMATION
  Report Type: Spontaneous
  Country: JM (occurrence: JM)
  Receive Date: 20130627
  Receipt Date: 20130627
  Transmission Date: 20140414
  Serious: Yes (Life-Threatening, Hospitalization)
  Sender: FDA-Public Use
  Company Number: PHHY2013JM066088

PATIENT
  Age: 24 Year
  Sex: Female

DRUGS (2)
  1. TEGRETOL CR [Suspect]
     Indication: BIPOLAR DISORDER
     Dosage: 400 MG, BID
     Route: 048
     Dates: start: 2007, end: 2009
  2. HALOPERIDOL [Concomitant]
     Dosage: 5 MG, BID
     Route: 048

REACTIONS (5)
  - Septic shock [Recovering/Resolving]
  - Stevens-Johnson syndrome [Recovering/Resolving]
  - Rash erythematous [Recovering/Resolving]
  - Rash pustular [Recovering/Resolving]
  - Skin exfoliation [Recovering/Resolving]
